FAERS Safety Report 17644837 (Version 1)
Quarter: 2020Q2

REPORT INFORMATION
  Report Type: Spontaneous
  Country: US (occurrence: US)
  Receive Date: 20200408
  Receipt Date: 20200408
  Transmission Date: 20200713
  Serious: Yes (Death)
  Sender: FDA-Public Use
  Company Number: None

PATIENT
  Age: 86 Year
  Sex: Male
  Weight: 76 kg

DRUGS (6)
  1. AMLODIPINE 2.5MG, ORAL [Concomitant]
  2. NORCO 7.5 - 325MG, ORAL [Concomitant]
  3. CAPECITABINE. [Suspect]
     Active Substance: CAPECITABINE
     Indication: COLON CANCER
     Route: 048
     Dates: start: 20200117, end: 20200408
  4. ASPIRIN 81MG, ORAL [Concomitant]
  5. HYDRALAZINE 100MG, ORAL [Concomitant]
  6. TYLENOL 8 HOUR ARTHITIS PAIN 650MG, ORAL [Concomitant]

REACTIONS (1)
  - Death [None]

NARRATIVE: CASE EVENT DATE: 20200408
